FAERS Safety Report 9706261 (Version 2)
Quarter: 2014Q2

REPORT INFORMATION
  Report Type: Spontaneous
  Country: JP (occurrence: JP)
  Receive Date: 20131125
  Receipt Date: 20140421
  Transmission Date: 20141212
  Serious: Yes (Other)
  Sender: FDA-Public Use
  Company Number: JP-ROCHE-1308283

PATIENT
  Age: 81 Year
  Sex: Male

DRUGS (2)
  1. RITUXIMAB [Suspect]
     Indication: LYMPHOMA
     Route: 042
     Dates: start: 20131113, end: 20131114
  2. GEMCITABINE HYDROCHLORIDE [Suspect]
     Indication: LYMPHOMA
     Route: 065
     Dates: start: 20131113, end: 20131114

REACTIONS (4)
  - Ascites [Unknown]
  - Neutrophil count decreased [Unknown]
  - Pleural effusion [Unknown]
  - Oedema [Unknown]
